FAERS Safety Report 10234709 (Version 1)
Quarter: 2014Q2

REPORT INFORMATION
  Report Type: Spontaneous
  Country: US (occurrence: None)
  Receive Date: 20140611
  Receipt Date: 20140611
  Transmission Date: 20141212
  Serious: No
  Sender: FDA-Public Use
  Company Number: None

PATIENT
  Age: 24 Year
  Sex: Female

DRUGS (7)
  1. HUMIRA [Suspect]
     Indication: CROHN^S DISEASE
     Dosage: 40 MG EVERY OTHER WEEK SUB Q
     Route: 058
     Dates: start: 20121222
  2. SULPHASALOZINE [Concomitant]
  3. FOLIC ACID [Concomitant]
  4. PROMETHOZINE [Concomitant]
  5. ZOFRAN [Concomitant]
  6. OXYCODONE [Concomitant]
  7. TRAZADONE [Concomitant]

REACTIONS (1)
  - Antibody test positive [None]
